FAERS Safety Report 10168033 (Version 1)
Quarter: 2014Q2

REPORT INFORMATION
  Report Type: Spontaneous
  Country: US (occurrence: US)
  Receive Date: 20140512
  Receipt Date: 20140512
  Transmission Date: 20141212
  Serious: No
  Sender: FDA-Public Use
  Company Number: US-PFIZER INC-2014126681

PATIENT
  Age: 50 Year
  Sex: Female

DRUGS (7)
  1. XELJANZ [Suspect]
     Indication: RHEUMATOID ARTHRITIS
     Dosage: 5 MG, 2X/DAY
     Route: 048
     Dates: start: 20140210
  2. HCTZ [Concomitant]
     Dosage: UNK
  3. PREDNISONE [Concomitant]
  4. LEFLUNOMIDE [Concomitant]
     Dosage: UNK
  5. ZYRTEC [Concomitant]
     Dosage: UNK
  6. TYLENOL [Concomitant]
     Dosage: UNK
  7. AMOXICILLIN [Concomitant]
     Dosage: UNK

REACTIONS (1)
  - Infection [Unknown]
